FAERS Safety Report 12859536 (Version 1)
Quarter: 2016Q4

REPORT INFORMATION
  Report Type: Report from Study
  Country: GB (occurrence: GB)
  Receive Date: 20161018
  Receipt Date: 20161018
  Transmission Date: 20170207
  Serious: Yes (Other)
  Sender: FDA-Public Use
  Company Number: GB-SA-2016SA072041

PATIENT
  Age: 67 Year
  Sex: Male
  Weight: 89 kg

DRUGS (5)
  1. AZD6244 [Suspect]
     Active Substance: SELUMETINIB
     Indication: RENAL CANCER
     Route: 048
     Dates: start: 20140407, end: 20150520
  2. VANDETANIB. [Suspect]
     Active Substance: VANDETANIB
     Indication: RENAL CANCER
     Dosage: 300 MG ONCE DAILY FOR FOUR DAYS FOLLOWED BY TEN DAYS AT 200MG
     Route: 048
     Dates: start: 20150324, end: 20150327
  3. AZD6244 [Suspect]
     Active Substance: SELUMETINIB
     Indication: RENAL CANCER
     Route: 048
     Dates: start: 20150618, end: 20150715
  4. VANDETANIB. [Suspect]
     Active Substance: VANDETANIB
     Indication: RENAL CANCER
     Route: 048
     Dates: start: 20150328, end: 20150520
  5. VANDETANIB. [Suspect]
     Active Substance: VANDETANIB
     Indication: RENAL CANCER
     Dosage: RELOADING DOSE 200 MG ONCE DAILY
     Route: 048
     Dates: start: 20150618, end: 20150715

REACTIONS (1)
  - Retinopathy [Recovered/Resolved]

NARRATIVE: CASE EVENT DATE: 20150521
